FAERS Safety Report 19823167 (Version 2)
Quarter: 2021Q3

REPORT INFORMATION
  Report Type: Spontaneous
  Country: US (occurrence: KR)
  Receive Date: 20210913
  Receipt Date: 20210927
  Transmission Date: 20211014
  Serious: Yes (Hospitalization, Other)
  Sender: FDA-Public Use
  Company Number: KR-BIOMARINAP-KR-2021-138483

PATIENT
  Sex: Female

DRUGS (1)
  1. ALDURAZYME [Suspect]
     Active Substance: LARONIDASE
     Indication: MUCOPOLYSACCHARIDOSIS I
     Dosage: 0.58 MILLIGRAM/KILOGRAM, QW
     Route: 041
     Dates: start: 20130403

REACTIONS (3)
  - Corneal scar [Recovering/Resolving]
  - Condition aggravated [Recovering/Resolving]
  - Corneal opacity [Recovering/Resolving]

NARRATIVE: CASE EVENT DATE: 20210826
